FAERS Safety Report 7671763-7 (Version None)
Quarter: 2011Q3

REPORT INFORMATION
  Report Type: 
  Country: None (occurrence: None)
  Receive Date: 20110809
  Receipt Date: 20110801
  Transmission Date: 20111222
  Serious: Yes (Hospitalization, Disabling)
  Sender: FDA-Public Use
  Company Number: FR-ROCHE-709879

PATIENT
  Sex: Female
  Weight: 53 kg

DRUGS (8)
  1. BROMAZEPAM [Concomitant]
     Dosage: HALF TABLET DAILY
     Route: 048
     Dates: start: 19850101
  2. PROPRANOLOL [Suspect]
     Dosage: 0.5 TABLET
     Route: 048
     Dates: start: 20060101
  3. ZOLPIDEM [Concomitant]
     Route: 048
     Dates: start: 19970101
  4. PREDNISONE [Concomitant]
     Dates: start: 20091201
  5. VITAMIN D [Concomitant]
  6. BONIVA [Suspect]
     Indication: OSTEOPOROSIS
     Route: 048
     Dates: start: 20071101, end: 20100601
  7. MONOCRIXO [Concomitant]
     Dosage: DRUG: MONOCRIXO LP 100
     Route: 048
     Dates: start: 20041201
  8. ESCITALOPRAM OXALATE [Concomitant]
     Dates: start: 20091201

REACTIONS (7)
  - RETINAL DISORDER [None]
  - GLARE [None]
  - VISUAL PATHWAY DISORDER [None]
  - PAPILLOEDEMA [None]
  - VISUAL ACUITY REDUCED [None]
  - FACIAL NEURALGIA [None]
  - CATARACT [None]
